FAERS Safety Report 6270945-9 (Version None)
Quarter: 2009Q3

REPORT INFORMATION
  Report Type: 
  Country: None (occurrence: None)
  Receive Date: 20090716
  Receipt Date: 20090706
  Transmission Date: 20100115
  Serious: Yes (Hospitalization, Other)
  Sender: FDA-Public Use
  Company Number: IT-ELI_LILLY_AND_COMPANY-IT200907000733

PATIENT
  Sex: Female

DRUGS (2)
  1. ZYPREXA [Suspect]
     Indication: DEMENTIA ALZHEIMER'S TYPE
     Dosage: 1 D/F, DAILY (1/D)
     Route: 048
     Dates: start: 20080805
  2. KEPPRA [Concomitant]
     Dosage: 2 D/F, UNK
     Route: 048
     Dates: start: 20080901

REACTIONS (3)
  - EPILEPSY [None]
  - HEMIPARESIS [None]
  - OFF LABEL USE [None]
